FAERS Safety Report 26079714 (Version 1)
Quarter: 2025Q4

REPORT INFORMATION
  Report Type: Report from Study
  Country: US (occurrence: US)
  Receive Date: 20251123
  Receipt Date: 20251123
  Transmission Date: 20260117
  Serious: Yes (Hospitalization)
  Sender: ABBVIE
  Company Number: US-ABBVIE-6540388

PATIENT
  Age: 61 Year
  Sex: Female

DRUGS (1)
  1. CREON [Suspect]
     Active Substance: PANCRELIPASE AMYLASE\PANCRELIPASE LIPASE\PANCRELIPASE PROTEASE
     Indication: Endocrine pancreatic disorder
     Route: 048
     Dates: start: 20250801

REACTIONS (4)
  - Infection [Unknown]
  - Drug ineffective [Unknown]
  - Autoimmune disorder [Unknown]
  - Malaise [Unknown]

NARRATIVE: CASE EVENT DATE: 20250101
